FAERS Safety Report 22540729 (Version 1)
Quarter: 2023Q2

REPORT INFORMATION
  Report Type: Spontaneous
  Country: US (occurrence: None)
  Receive Date: 20230608
  Receipt Date: 20230608
  Transmission Date: 20230722
  Serious: Yes (unspecified)
  Sender: FDA-Public Use
  Company Number: None

PATIENT
  Age: 31 Year
  Sex: Female
  Weight: 62.1 kg

DRUGS (5)
  1. BREXAFEMME [Suspect]
     Active Substance: IBREXAFUNGERP CITRATE
     Dates: start: 20230602
  2. IBUPROFEN [Concomitant]
     Active Substance: IBUPROFEN
  3. TRETINOIN [Concomitant]
     Active Substance: TRETINOIN
  4. myomin [Concomitant]
  5. CALCIUM [Suspect]
     Active Substance: CALCIUM

REACTIONS (2)
  - Abdominal discomfort [None]
  - Diarrhoea [None]

NARRATIVE: CASE EVENT DATE: 20230602
